FAERS Safety Report 16371564 (Version 1)
Quarter: 2019Q2

REPORT INFORMATION
  Report Type: Spontaneous
  Country: US (occurrence: US)
  Receive Date: 20190423
  Receipt Date: 20190423
  Transmission Date: 20190711
  Serious: No
  Sender: FDA-Public Use
  Company Number: None

PATIENT
  Sex: Female

DRUGS (1)
  1. TRACLEER [Suspect]
     Active Substance: BOSENTAN
     Indication: PULMONARY ARTERIAL HYPERTENSION
     Route: 048
     Dates: start: 20181109, end: 20190320

REACTIONS (3)
  - Therapy cessation [None]
  - Bronchopulmonary dysplasia [None]
  - Chronic respiratory failure [None]

NARRATIVE: CASE EVENT DATE: 20190423
